FAERS Safety Report 14608769 (Version 1)
Quarter: 2018Q1

REPORT INFORMATION
  Report Type: Spontaneous
  Country: US (occurrence: US)
  Receive Date: 20180306
  Receipt Date: 20180306
  Transmission Date: 20180509
  Serious: Yes (Life-Threatening, Disabling, Other)
  Sender: FDA-Public Use
  Company Number: None

PATIENT
  Age: 74 Year
  Sex: Male
  Weight: 96.75 kg

DRUGS (14)
  1. FISH OIL [Concomitant]
     Active Substance: FISH OIL
  2. AMIODARONE [Suspect]
     Active Substance: AMIODARONE
     Indication: ARRHYTHMIA
     Dosage: ?          QUANTITY:60 TABLET(S);?
     Route: 048
     Dates: start: 20171110, end: 20171230
  3. FINASTERIDE. [Concomitant]
     Active Substance: FINASTERIDE
  4. NIACIN. [Concomitant]
     Active Substance: NIACIN
  5. PERINDOPRIL ERBUMINE. [Concomitant]
     Active Substance: PERINDOPRIL ERBUMINE
  6. WARFARIN [Concomitant]
     Active Substance: WARFARIN
  7. OXYBUTYNIN ER [Concomitant]
     Active Substance: OXYBUTYNIN
  8. VITAMIN B COMPLEX [Concomitant]
     Active Substance: CYANOCOBALAMIN\DEXPANTHENOL\NIACINAMIDE\PYRIDOXINE HYDROCHLORIDE\RIBOFLAVIN 5^-PHOSPHATE SODIUM\THIAMINE HYDROCHLORIDE\VITAMIN B COMPLEX
  9. CARVEDILOL. [Concomitant]
     Active Substance: CARVEDILOL
  10. D-3 [Concomitant]
     Active Substance: CHOLECALCIFEROL
  11. TYLENOL [Concomitant]
     Active Substance: ACETAMINOPHEN
  12. TAMSULOSIN [Concomitant]
     Active Substance: TAMSULOSIN
  13. C-PAP MACHINE [Concomitant]
     Active Substance: DEVICE
  14. MIRALLAX [Concomitant]

REACTIONS (8)
  - Gait disturbance [None]
  - Peripheral swelling [None]
  - Paraesthesia [None]
  - Hypoaesthesia [None]
  - Speech disorder [None]
  - Balance disorder [None]
  - Fall [None]
  - Joint stiffness [None]

NARRATIVE: CASE EVENT DATE: 20171124
